FAERS Safety Report 21417541 (Version 1)
Quarter: 2022Q4

REPORT INFORMATION
  Report Type: Spontaneous
  Country: US (occurrence: US)
  Receive Date: 20221006
  Receipt Date: 20221006
  Transmission Date: 20230113
  Serious: Yes (Death, Other)
  Sender: FDA-Public Use
  Company Number: US-drreddys-LIT/USA/22/0155434

PATIENT
  Age: 19 Year
  Sex: Male

DRUGS (24)
  1. AZACITIDINE [Suspect]
     Active Substance: AZACITIDINE
     Indication: Acute myeloid leukaemia
     Dosage: SECOND LINE THERAPY
  2. AZACITIDINE [Suspect]
     Active Substance: AZACITIDINE
     Dosage: NINTH LINE THERAPY
  3. DECITABINE [Suspect]
     Active Substance: DECITABINE
     Indication: Acute myeloid leukaemia
     Dosage: THIRD LINE THERAPY
  4. DECITABINE [Suspect]
     Active Substance: DECITABINE
     Dosage: EIGHTH LINE THERAPY
  5. DECITABINE [Suspect]
     Active Substance: DECITABINE
     Dosage: TENTH LINE THERAPY
  6. SORAFENIB [Suspect]
     Active Substance: SORAFENIB
     Indication: Acute myeloid leukaemia
     Dosage: TENTH LINE THERAPY
  7. FLUDARABINE [Suspect]
     Active Substance: FLUDARABINE PHOSPHATE
     Indication: Acute myeloid leukaemia
     Dosage: SECOND LINE THERAPY
  8. FLUDARABINE [Suspect]
     Active Substance: FLUDARABINE PHOSPHATE
     Dosage: ELEVENTH LINE THERAPY
  9. CYTARABINE [Suspect]
     Active Substance: CYTARABINE
     Indication: Acute myeloid leukaemia
     Dosage: SECOND LINE THERAPY
  10. CYTARABINE [Suspect]
     Active Substance: CYTARABINE
     Dosage: ELEVENTH LINE THERAPY
  11. VENETOCLAX [Suspect]
     Active Substance: VENETOCLAX
     Indication: Acute myeloid leukaemia
     Dosage: EIGHTH LINE THERAPY
  12. VENETOCLAX [Suspect]
     Active Substance: VENETOCLAX
     Dosage: TENTH LINE THERAPY
  13. MIDOSTAURIN [Suspect]
     Active Substance: MIDOSTAURIN
     Indication: Acute myeloid leukaemia
     Dosage: EIGHTH LINE THERAPY
  14. PONATINIB [Suspect]
     Active Substance: PONATINIB
     Indication: Acute myeloid leukaemia
     Dosage: TENTH LINE THERAPY
  15. PONATINIB [Suspect]
     Active Substance: PONATINIB
     Dosage: ELEVENTH LINE THERAPY
  16. VORINOSTAT [Suspect]
     Active Substance: VORINOSTAT
     Indication: Acute myeloid leukaemia
     Dosage: ELEVENTH LINE THERAPY
  17. GILTERITINIB [Suspect]
     Active Substance: GILTERITINIB
     Indication: Acute myeloid leukaemia
     Dosage: TENTH LINE THERAPY
  18. GILTERITINIB [Suspect]
     Active Substance: GILTERITINIB
     Dosage: ELEVENTH LINE THERAPY
  19. GILTERITINIB [Suspect]
     Active Substance: GILTERITINIB
  20. CYTARABINE [Concomitant]
     Active Substance: CYTARABINE
     Indication: Acute myeloid leukaemia
  21. CYTARABINE [Concomitant]
     Active Substance: CYTARABINE
     Dosage: FIRST LINE THERAPY
  22. DAUNORUBICIN [Concomitant]
     Active Substance: DAUNORUBICIN
     Indication: Acute myeloid leukaemia
  23. ETOPOSIDE [Concomitant]
     Active Substance: ETOPOSIDE
     Indication: Acute myeloid leukaemia
  24. MITOXANTRONE [Concomitant]
     Active Substance: MITOXANTRONE HYDROCHLORIDE
     Indication: Acute myeloid leukaemia

REACTIONS (8)
  - Death [Fatal]
  - Haemorrhage intracranial [Unknown]
  - Acidosis [Unknown]
  - Febrile neutropenia [Unknown]
  - Bacteraemia [Unknown]
  - Pneumonia fungal [Unknown]
  - Drug ineffective [Unknown]
  - Alanine aminotransferase increased [Unknown]
